FAERS Safety Report 6755448-7 (Version None)
Quarter: 2010Q2

REPORT INFORMATION
  Report Type: 
  Country: None (occurrence: None)
  Receive Date: 20100604
  Receipt Date: 20100526
  Transmission Date: 20101027
  Serious: Yes (Hospitalization)
  Sender: FDA-Public Use
  Company Number: FR-JNJFOC-20090205459

PATIENT
  Age: 39 Year
  Sex: Female
  Weight: 51 kg

DRUGS (6)
  1. INFLIXIMAB [Suspect]
     Indication: CROHN'S DISEASE
     Route: 042
  2. INFLIXIMAB [Suspect]
     Route: 042
  3. INFLIXIMAB [Suspect]
     Route: 042
  4. INFLIXIMAB [Suspect]
     Route: 042
  5. MESALAZINE [Concomitant]
     Indication: CROHN'S DISEASE
  6. LOPERAMIDE [Concomitant]
     Indication: DIARRHOEA

REACTIONS (1)
  - COLOSTOMY CLOSURE [None]
